FAERS Safety Report 6531497-9 (Version None)
Quarter: 2010Q1

REPORT INFORMATION
  Report Type: 
  Country: None (occurrence: None)
  Receive Date: 20100108
  Receipt Date: 20100104
  Transmission Date: 20100710
  Serious: Yes (Other)
  Sender: FDA-Public Use
  Company Number: US-PFIZER INC-2006054930

PATIENT
  Sex: Female
  Weight: 60 kg

DRUGS (9)
  1. PROVERA [Suspect]
     Indication: HORMONE REPLACEMENT THERAPY
     Dosage: 5 MG, UNK
     Dates: start: 19800101, end: 20000901
  2. PROVERA [Suspect]
     Dosage: 10 MG, UNK
     Dates: start: 19800101, end: 20000901
  3. MEDROXYPROGESTERONE AND MEDROXYPROGESTERONE ACETATE [Suspect]
     Dosage: 5 MG, UNK
     Dates: start: 19800101, end: 20000901
  4. MEDROXYPROGESTERONE AND MEDROXYPROGESTERONE ACETATE [Suspect]
     Dosage: 10 MG, UNK
     Dates: start: 19800101, end: 20000901
  5. PREMARIN [Suspect]
     Indication: HORMONE REPLACEMENT THERAPY
     Dosage: 0.625 MG, UNK
     Route: 065
     Dates: start: 19800101, end: 20000901
  6. AYGESTIN [Suspect]
     Dosage: 5 MG, UNK
     Dates: start: 19800101, end: 20000901
  7. PREMPRO [Suspect]
     Dosage: UNK
     Dates: start: 19980801
  8. CYCRIN [Suspect]
     Dosage: 5 MG, UNK
     Dates: start: 19800101, end: 20000901
  9. SYNTHROID [Concomitant]
     Indication: HYPOTHYROIDISM
     Dosage: UNK
     Dates: start: 19900101

REACTIONS (1)
  - BREAST CANCER FEMALE [None]
